FAERS Safety Report 19191862 (Version 2)
Quarter: 2021Q2

REPORT INFORMATION
  Report Type: Report from Study
  Country: US (occurrence: US)
  Receive Date: 20210428
  Receipt Date: 20210521
  Transmission Date: 20210717
  Serious: Yes (Hospitalization)
  Sender: FDA-Public Use
  Company Number: US-CELGENEUS-USA-20210405438

PATIENT
  Age: 59 Year
  Sex: Male
  Weight: 77 kg

DRUGS (18)
  1. JCAR017 [Suspect]
     Active Substance: LISOCABTAGENE MARALEUCEL
     Indication: MARGINAL ZONE LYMPHOMA
     Dosage: 100 X 10^6 CAR+ T CELLS X ONCE
     Route: 042
     Dates: start: 20210308, end: 20210308
  2. FLUDARABINE [Suspect]
     Active Substance: FLUDARABINE PHOSPHATE
     Dosage: 55 MG X ONCE
     Route: 042
     Dates: start: 20210304, end: 20210304
  3. LOTREL (AMLODIPINE/BENAZEPRIL) [Concomitant]
     Indication: HYPERTENSION
     Dosage: 5/20 MG X 1 X 1 DAYS
     Route: 048
     Dates: start: 201911
  4. CYCLOPHOSPHAMIDE. [Suspect]
     Active Substance: CYCLOPHOSPHAMIDE
     Indication: MARGINAL ZONE LYMPHOMA
     Dosage: 560 MG X ONCE
     Route: 042
     Dates: start: 20210303, end: 20210303
  5. SENNA [Concomitant]
     Active Substance: SENNA LEAF\SENNOSIDES\SENNOSIDES A AND B
     Indication: PROPHYLAXIS
     Dosage: 8.6 MG X 1 X 1 DAYS
     Route: 048
     Dates: start: 20210320
  6. CYCLOPHOSPHAMIDE. [Suspect]
     Active Substance: CYCLOPHOSPHAMIDE
     Dosage: 560 MG X ONCE
     Route: 042
     Dates: start: 20210305, end: 20210305
  7. FLUDARABINE [Suspect]
     Active Substance: FLUDARABINE PHOSPHATE
     Dosage: 55 MG X ONCE
     Route: 042
     Dates: start: 20210305, end: 20210305
  8. EMLA [Concomitant]
     Active Substance: LIDOCAINE\PRILOCAINE
     Indication: ANAESTHESIA
     Dosage: UNKNOWN % X PRN
     Route: 061
     Dates: start: 201907
  9. BACTRIM [Concomitant]
     Active Substance: SULFAMETHOXAZOLE\TRIMETHOPRIM
     Indication: PROPHYLAXIS
     Dosage: 800?160 MG X 3 X 1 WEEKS
     Route: 048
     Dates: start: 20210321
  10. LORAZEPAM. [Concomitant]
     Active Substance: LORAZEPAM
     Indication: PROPHYLAXIS
     Dosage: 0.5 MG X 1 X 6 HOURS
     Route: 048
     Dates: start: 20210423
  11. VALACYCLOVIR [Concomitant]
     Active Substance: VALACYCLOVIR HYDROCHLORIDE
     Indication: PROPHYLAXIS
     Dosage: 500 MG X 2 X 1 DAYS
     Route: 048
     Dates: start: 20210305
  12. CYCLOPHOSPHAMIDE. [Suspect]
     Active Substance: CYCLOPHOSPHAMIDE
     Dosage: 560 MG X ONCE
     Route: 042
     Dates: start: 20210304, end: 20210304
  13. DOCUSATE SODIUM. [Concomitant]
     Active Substance: DOCUSATE SODIUM
     Indication: PROPHYLAXIS
     Dosage: 100 MG X 2 X 1 DAYS
     Route: 048
     Dates: start: 20210320
  14. FLUDARABINE [Suspect]
     Active Substance: FLUDARABINE PHOSPHATE
     Indication: MARGINAL ZONE LYMPHOMA
     Dosage: 55 MG X ONCE
     Route: 042
     Dates: start: 20210303, end: 20210303
  15. CHOLECALCIFEROL [Concomitant]
     Active Substance: CHOLECALCIFEROL
     Indication: OSTEOPENIA
     Dosage: 1000 IU X 1 X 1 DAYS
     Route: 048
     Dates: start: 20210319
  16. FLUCONAZOLE. [Concomitant]
     Active Substance: FLUCONAZOLE
     Indication: PROPHYLAXIS
     Dosage: 400 MG X 1 X 1 DAYS
     Route: 048
     Dates: start: 20210305
  17. LEVOFLOXACIN. [Concomitant]
     Active Substance: LEVOFLOXACIN
     Indication: PROPHYLAXIS
     Dosage: 500 MG X 1 X 1 DAYS
     Route: 048
     Dates: start: 20210305
  18. LEVOFLOXACIN. [Concomitant]
     Active Substance: LEVOFLOXACIN
     Indication: ADVERSE EVENT
     Dosage: 500 MG X 1 X 1 DAYS
     Route: 048
     Dates: start: 20210329

REACTIONS (1)
  - Neurotoxicity [Recovered/Resolved]

NARRATIVE: CASE EVENT DATE: 20210412
